FAERS Safety Report 5095277-6 (Version None)
Quarter: 2006Q3

REPORT INFORMATION
  Report Type: 
  Country: None (occurrence: None)
  Receive Date: 20060901
  Receipt Date: 20060822
  Transmission Date: 20061208
  Serious: Yes (Other)
  Sender: FDA-Public Use
  Company Number: PHEH2006US10763

PATIENT
  Age: 49 Year
  Sex: Female

DRUGS (5)
  1. LAMISIL [Suspect]
     Indication: NAIL TINEA
     Dosage: 250 MG, QD
     Route: 048
     Dates: start: 20060807, end: 20060819
  2. CELEBREX [Concomitant]
     Indication: PAIN
     Dosage: 200 MG, QOD
  3. BENADRYL ^PFIZER WARNER-LAMBERT^ [Concomitant]
     Dates: start: 20060817
  4. ADVIL [Concomitant]
     Dates: start: 20060818
  5. DARVOCET [Concomitant]
     Indication: PAIN
     Dosage: UNK, PRN
     Route: 048

REACTIONS (8)
  - DIARRHOEA [None]
  - DYSARTHRIA [None]
  - DYSGEUSIA [None]
  - FALL [None]
  - FEELING DRUNK [None]
  - GAIT DISTURBANCE [None]
  - MEMORY IMPAIRMENT [None]
  - PERIORBITAL HAEMATOMA [None]
